FAERS Safety Report 21764983 (Version 2)
Quarter: 2023Q1

REPORT INFORMATION
  Report Type: Spontaneous
  Country: MX (occurrence: MX)
  Receive Date: 20221222
  Receipt Date: 20230113
  Transmission Date: 20230417
  Serious: Yes (Other)
  Sender: FDA-Public Use
  Company Number: MX-ASTELLAS-2022US044845

PATIENT
  Age: 76 Year
  Sex: Male

DRUGS (2)
  1. XTANDI [Suspect]
     Active Substance: ENZALUTAMIDE
     Indication: Prostate cancer
     Dosage: 160 MG, ONCE DAILY [WITH 12 APPLIED CYCLES (28 DAYS EVERY CYCLE)]
     Route: 048
     Dates: start: 20211201
  2. GOSERELIN [Concomitant]
     Active Substance: GOSERELIN
     Indication: Prostate cancer
     Dosage: 10.8 MG, DOSAGE EVERY 12 WEEKS WITH 4 APPLIED CYCLES
     Route: 065
     Dates: start: 20211201

REACTIONS (1)
  - Malignant neoplasm progression [Unknown]

NARRATIVE: CASE EVENT DATE: 20211201
